FAERS Safety Report 15840466 (Version 2)
Quarter: 2019Q1

REPORT INFORMATION
  Report Type: Spontaneous
  Country: US (occurrence: US)
  Receive Date: 20190118
  Receipt Date: 20190206
  Transmission Date: 20190417
  Serious: No
  Sender: FDA-Public Use
  Company Number: US-B.I. PHARMACEUTICALS,INC./RIDGEFIELD-2019-BI-001962

PATIENT
  Age: 55 Year
  Sex: Female

DRUGS (3)
  1. JARDIANCE [Suspect]
     Active Substance: EMPAGLIFLOZIN
     Indication: TYPE 2 DIABETES MELLITUS
     Dosage: FORM STRENGTH: 10 MG; FORMULATION: TABLET? ADMINISTRATION CORRECT? YES?START DATE: 22-OCT-2018
     Route: 048
     Dates: start: 20181022, end: 20181123
  2. CRESTOR [Concomitant]
     Active Substance: ROSUVASTATIN CALCIUM
     Indication: BLOOD CHOLESTEROL INCREASED
     Dosage: ONE DAILY;  FORM STRENGTH: 10 MG; FORMULATION: TABLET
     Route: 048
  3. JARDIANCE [Suspect]
     Active Substance: EMPAGLIFLOZIN
     Dosage: ONE TABLET DAILY;  FORM STRENGTH: 25 MG; FORMULATION: TABLET
     Route: 048
     Dates: start: 20181126

REACTIONS (5)
  - Dry eye [Not Recovered/Not Resolved]
  - Glomerular filtration rate increased [Not Recovered/Not Resolved]
  - Low density lipoprotein increased [Not Recovered/Not Resolved]
  - Blood glucose abnormal [Not Recovered/Not Resolved]
  - Dehydration [Not Recovered/Not Resolved]

NARRATIVE: CASE EVENT DATE: 201810
